FAERS Safety Report 8189495-8 (Version None)
Quarter: 2012Q1

REPORT INFORMATION
  Report Type: 
  Country: None (occurrence: None)
  Receive Date: 20120307
  Receipt Date: 20120228
  Transmission Date: 20120608
  Serious: Yes (Other)
  Sender: FDA-Public Use
  Company Number: US-BAYER-2011-045153

PATIENT
  Age: 18 Year
  Sex: Female
  Weight: 68.027 kg

DRUGS (2)
  1. YASMIN [Suspect]
     Indication: CONTRACEPTION
  2. YASMIN [Suspect]
     Indication: PREMENSTRUAL SYNDROME
     Dosage: UNK
     Dates: start: 20030806, end: 20040903

REACTIONS (10)
  - CHOLELITHIASIS [None]
  - BILIARY COLIC [None]
  - EMOTIONAL DISTRESS [None]
  - ANXIETY [None]
  - GENERAL PHYSICAL HEALTH DETERIORATION [None]
  - PAIN [None]
  - CHOLECYSTITIS [None]
  - ABDOMINAL PAIN [None]
  - NAUSEA [None]
  - VOMITING [None]
